FAERS Safety Report 16624170 (Version 1)
Quarter: 2019Q3

REPORT INFORMATION
  Report Type: Report from Study
  Country: US (occurrence: US)
  Receive Date: 20190724
  Receipt Date: 20190724
  Transmission Date: 20191004
  Serious: Yes (Other)
  Sender: FDA-Public Use
  Company Number: US-ROCHE-2354172

PATIENT
  Sex: Female

DRUGS (1)
  1. OCREVUS [Suspect]
     Active Substance: OCRELIZUMAB
     Indication: PRIMARY PROGRESSIVE MULTIPLE SCLEROSIS
     Dosage: SUBSEQUENT DOSES ON: 01/JUN/2018, 03/DEC/2018
     Route: 065
     Dates: start: 20180518

REACTIONS (2)
  - Urinary tract infection [Recovered/Resolved]
  - Ear infection [Not Recovered/Not Resolved]
